FAERS Safety Report 8907150 (Version 3)
Quarter: 2012Q4

REPORT INFORMATION
  Report Type: 
  Country: US (occurrence: US)
  Receive Date: 20121114
  Receipt Date: 20121217
  Transmission Date: 20130627
  Serious: Yes (Hospitalization, Other)
  Sender: FDA-Public Use
  Company Number: US-BAXTER-2012BAX017652

PATIENT
  Age: 69 Year
  Sex: Female

DRUGS (3)
  1. DIANEAL LOW CALCIUM [Suspect]
     Indication: PERITONEAL DIALYSIS
     Route: 033
  2. DIANEAL LOW CALCIUM (ULTRABAG) [Suspect]
     Indication: PERITONEAL DIALYSIS
     Route: 033
  3. CIPRO [Suspect]
     Indication: DRUG USE FOR UNKNOWN INDICATION
     Route: 065

REACTIONS (32)
  - Gallbladder disorder [Recovering/Resolving]
  - Osteomyelitis [Recovering/Resolving]
  - Back disorder [Recovering/Resolving]
  - Back pain [Unknown]
  - Urinary tract infection [Recovering/Resolving]
  - Fall [Unknown]
  - Limb injury [Unknown]
  - Joint injury [Unknown]
  - Hypoaesthesia [Unknown]
  - Umbilical hernia [Recovered/Resolved]
  - Chest pain [Unknown]
  - Pain in extremity [Recovering/Resolving]
  - Swelling [Unknown]
  - Oedema peripheral [Recovering/Resolving]
  - Dyskinesia [Unknown]
  - Procedural complication [Unknown]
  - Movement disorder [Unknown]
  - Weight increased [Unknown]
  - Scratch [Unknown]
  - Contusion [Unknown]
  - Pain in extremity [Unknown]
  - Dysphonia [Unknown]
  - Somnolence [Unknown]
  - Muscle spasms [Unknown]
  - Diplegia [Unknown]
  - Gait disturbance [Unknown]
  - Diarrhoea [Unknown]
  - Musculoskeletal pain [Recovering/Resolving]
  - Pain [Unknown]
  - Abdominal pain [Recovering/Resolving]
  - Abdominal pain upper [Unknown]
  - Fluid overload [Recovered/Resolved]
